FAERS Safety Report 9388804 (Version 3)
Quarter: 2013Q3

REPORT INFORMATION
  Report Type: Spontaneous
  Country: IN (occurrence: IN)
  Receive Date: 20130708
  Receipt Date: 20130712
  Transmission Date: 20140515
  Serious: Yes (Death, Hospitalization, Other)
  Sender: FDA-Public Use
  Company Number: PHHY2013IN070181

PATIENT
  Age: 12 Year
  Sex: Male

DRUGS (3)
  1. VALPROIC ACID [Suspect]
     Indication: EPILEPSY
     Dosage: 300 MG, PER DAY
     Route: 048
  2. LAMOTRIGINE [Interacting]
     Indication: EPILEPSY
     Dosage: 50 MG, PER DAY
     Route: 048
  3. CLONAZEPAM [Concomitant]
     Indication: EPILEPSY
     Dosage: 0.25 MG, PER DAY
     Route: 048

REACTIONS (24)
  - Toxic epidermal necrolysis [Fatal]
  - Stevens-Johnson syndrome [Fatal]
  - Respiratory disorder [Fatal]
  - Skin lesion [Fatal]
  - Ocular hyperaemia [Fatal]
  - Dyspnoea [Fatal]
  - Pyrexia [Fatal]
  - Eyelid oedema [Fatal]
  - Skin reaction [Fatal]
  - Blister [Fatal]
  - Rash vesicular [Fatal]
  - Erythema multiforme [Fatal]
  - Skin erosion [Fatal]
  - Conjunctival hyperaemia [Fatal]
  - Corneal disorder [Fatal]
  - Mucosal erosion [Fatal]
  - Genital erosion [Fatal]
  - Oral mucosa erosion [Fatal]
  - Nikolsky^s sign [Fatal]
  - Respiratory failure [Fatal]
  - Delirium [Unknown]
  - Aggression [Unknown]
  - Disorientation [Unknown]
  - Drug interaction [Unknown]
